FAERS Safety Report 18213575 (Version 10)
Quarter: 2024Q4

REPORT INFORMATION
  Report Type: Spontaneous
  Country: US (occurrence: US)
  Receive Date: 20200831
  Receipt Date: 20241031
  Transmission Date: 20250115
  Serious: Yes (Death)
  Sender: PFIZER
  Company Number: US-PFIZER INC-2020301670

PATIENT
  Age: 80 Year
  Sex: Female

DRUGS (5)
  1. MEKTOVI [Suspect]
     Active Substance: BINIMETINIB
     Indication: Malignant melanoma of eyelid
     Dosage: 15 MG TAKES 2 CAPSULES DAILY
     Route: 048
  2. MEKTOVI [Suspect]
     Active Substance: BINIMETINIB
     Dosage: 30 MG, 2X/DAY
     Dates: start: 20200410
  3. MEKTOVI [Suspect]
     Active Substance: BINIMETINIB
     Dosage: TAKE 2 TABLETS (30 MG TOTAL) BY MOUTH EVERY 12 (TWELVE) HOURS.
     Route: 048
  4. BRAFTOVI [Suspect]
     Active Substance: ENCORAFENIB
     Indication: Malignant melanoma of eyelid
     Dosage: 300 MG, 1X/DAY
     Dates: start: 20200410
  5. BRAFTOVI [Suspect]
     Active Substance: ENCORAFENIB
     Dosage: 300 MG, DAILY
     Route: 048

REACTIONS (7)
  - Death [Fatal]
  - Fatigue [Not Recovered/Not Resolved]
  - Abdominal pain upper [Unknown]
  - Gastritis [Unknown]
  - Alopecia [Unknown]
  - Dysphonia [Unknown]
  - Off label use [Unknown]

NARRATIVE: CASE EVENT DATE: 20240604
